FAERS Safety Report 6425286-3 (Version None)
Quarter: 2009Q4

REPORT INFORMATION
  Report Type: 
  Country: None (occurrence: None)
  Receive Date: 20091103
  Receipt Date: 20091022
  Transmission Date: 20100525
  Serious: Yes (Hospitalization, Other)
  Sender: FDA-Public Use
  Company Number: CHPA2009US20604

PATIENT
  Age: 60 Year
  Sex: Male
  Weight: 77.098 kg

DRUGS (3)
  1. MAALOX ADV MAXIMUM STRENGTH ANTACID/ANTIGAS (NCH) [Suspect]
     Indication: DYSPEPSIA
     Dosage: 12 TABLESPOONS IN 24 HOURS
     Route: 048
     Dates: start: 20091018, end: 20091019
  2. MAALOX ADV MAXIMUM STRENGTH ANTACID/ANTIGAS (NCH) [Suspect]
     Indication: ABDOMINAL PAIN
  3. PEPCID [Suspect]
     Dosage: UNK, UNK
     Route: 048
     Dates: start: 20091018, end: 20091019

REACTIONS (13)
  - ABDOMINAL PAIN UPPER [None]
  - BLOOD ELECTROLYTES ABNORMAL [None]
  - BLOOD POTASSIUM DECREASED [None]
  - BLOOD PRESSURE DECREASED [None]
  - CHILLS [None]
  - DEHYDRATION [None]
  - FLATULENCE [None]
  - GASTROINTESTINAL INFECTION [None]
  - HEART RATE DECREASED [None]
  - OVERDOSE [None]
  - PYREXIA [None]
  - THROMBOSIS [None]
  - WHITE BLOOD CELL COUNT DECREASED [None]
